FAERS Safety Report 10481078 (Version 1)
Quarter: 2014Q3

REPORT INFORMATION
  Report Type: Spontaneous
  Country: CH (occurrence: None)
  Receive Date: 20140925
  Receipt Date: 20140925
  Transmission Date: 20150326
  Serious: Yes (Other)
  Sender: FDA-Public Use
  Company Number: 2014090056

PATIENT
  Age: 82 Year
  Sex: Female

DRUGS (11)
  1. TORASEMIDE [Suspect]
     Active Substance: TORSEMIDE
     Route: 048
     Dates: end: 20140720
  2. RASILEZ HCT [Suspect]
     Active Substance: ALISKIREN\HYDROCHLOROTHIAZIDE
     Dosage: 300MG/12.5MG (1 DOSAGE FORMS, 1 IN 1 D), ORAL
     Route: 048
     Dates: end: 20140720
  3. ATORVASTATIN [Concomitant]
     Active Substance: ATORVASTATIN
  4. ENALAPRIL [Concomitant]
     Active Substance: ENALAPRIL
  5. ROHYPNOL (FLUNITRAZEPAM) [Concomitant]
     Active Substance: FLUNITRAZEPAM
  6. NORVIR [Suspect]
     Active Substance: RITONAVIR
     Route: 048
     Dates: start: 1998
  7. PREZISTA [Suspect]
     Active Substance: DARUNAVIR ETHANOLATE
     Dosage: 1X/24H IN THE EVENING (800 MG, 1 IN 1 D), ORAL
     Route: 048
     Dates: start: 201401
  8. DILATREND (CARVEDILOL) [Concomitant]
  9. AMLODIPINE [Concomitant]
     Active Substance: AMLODIPINE BESYLATE
  10. COMBIVIR [Suspect]
     Active Substance: LAMIVUDINE\ZIDOVUDINE
     Dosage: AT 5:30 AM AND 1:30 PM (1 DOSAGE FORMS, 2 IN 1 D), ORAL
     Route: 048
  11. SERESTA FORTE (OXAZEPAM) [Concomitant]

REACTIONS (6)
  - Electrocardiogram QT prolonged [None]
  - Hypokalaemia [None]
  - Hyponatraemia [None]
  - Water intoxication [None]
  - Malnutrition [None]
  - Drug interaction [None]

NARRATIVE: CASE EVENT DATE: 20140720
